FAERS Safety Report 5326227-2 (Version None)
Quarter: 2007Q2

REPORT INFORMATION
  Report Type: 
  Country: None (occurrence: None)
  Receive Date: 20070516
  Receipt Date: 20070504
  Transmission Date: 20071010
  Serious: Yes (Hospitalization)
  Sender: FDA-Public Use
  Company Number: AU-BRISTOL-MYERS SQUIBB COMPANY-13778790

PATIENT
  Age: 62 Year
  Sex: Male

DRUGS (7)
  1. DIAFORMIN [Suspect]
     Indication: DIABETES MELLITUS
     Route: 048
  2. DIAMICRON [Suspect]
     Indication: DIABETES MELLITUS
     Route: 048
  3. TRITACE [Suspect]
     Indication: DIABETES MELLITUS
     Dates: start: 20060310
  4. DIFLUCAN [Suspect]
     Dates: start: 20060411, end: 20060421
  5. CIPRO [Suspect]
     Indication: SEPSIS
     Dates: start: 20060315
  6. AUGMENTIN '125' [Suspect]
     Indication: SEPSIS
     Dates: start: 20060331
  7. MINAX [Concomitant]
     Indication: ESSENTIAL HYPERTENSION
     Dates: start: 20060315

REACTIONS (4)
  - DEHYDRATION [None]
  - HYPOGLYCAEMIA [None]
  - RENAL FAILURE ACUTE [None]
  - VOMITING [None]
